FAERS Safety Report 11862862 (Version 1)
Quarter: 2020Q3

REPORT INFORMATION
  Report Type: Spontaneous
  Country: IT (occurrence: IT)
  Receive Date: 20151223
  Receipt Date: 20151223
  Transmission Date: 20201104
  Serious: Yes (Death)
  Sender: FDA-Public Use
  Company Number: IT-ROCHE-1665005

PATIENT
  Age: 45 Year
  Sex: Female

DRUGS (5)
  1. PANTOPRAZOLE [Concomitant]
     Active Substance: PANTOPRAZOLE
     Route: 065
  2. SOLDESAM [Concomitant]
     Active Substance: DEXAMETHASONE
     Route: 065
  3. VALIUM [Concomitant]
     Active Substance: DIAZEPAM
     Route: 065
  4. FONDAPARINUX [Concomitant]
     Active Substance: FONDAPARINUX
     Route: 058
  5. ALECTINIB. [Suspect]
     Active Substance: ALECTINIB
     Indication: METASTASES TO MENINGES
     Route: 065
     Dates: start: 20150808

REACTIONS (1)
  - Haemoptysis [Fatal]

NARRATIVE: CASE EVENT DATE: 20151005
